FAERS Safety Report 22062937 (Version 2)
Quarter: 2023Q2

REPORT INFORMATION
  Report Type: Report from Study
  Country: US (occurrence: US)
  Receive Date: 20230306
  Receipt Date: 20230410
  Transmission Date: 20230721
  Serious: Yes (Other)
  Sender: FDA-Public Use
  Company Number: US-ABBVIE-4323324

PATIENT
  Age: 51 Year
  Sex: Female

DRUGS (1)
  1. RINVOQ [Suspect]
     Active Substance: UPADACITINIB
     Indication: Rheumatoid arthritis
     Route: 048
     Dates: start: 202101, end: 202301

REACTIONS (10)
  - Cataract [Unknown]
  - Skin disorder [Unknown]
  - Dry skin [Unknown]
  - Spinal operation [Unknown]
  - Breakthrough pain [Not Recovered/Not Resolved]
  - Skin exfoliation [Unknown]
  - Migraine [Unknown]
  - Urticaria [Unknown]
  - Scratch [Unknown]
  - Skin haemorrhage [Unknown]

NARRATIVE: CASE EVENT DATE: 20230215
